FAERS Safety Report 8894948 (Version 1)
Quarter: 2012Q4

REPORT INFORMATION
  Report Type: 
  Country: CN (occurrence: CN)
  Receive Date: 20121108
  Receipt Date: 20121108
  Transmission Date: 20130627
  Serious: Yes (Other)
  Sender: FDA-Public Use
  Company Number: PHHY2012CN101238

PATIENT
  Age: 20 Year
  Sex: Male

DRUGS (5)
  1. CICLOSPORIN [Suspect]
     Indication: PROPHYLAXIS AGAINST GRAFT VERSUS HOST DISEASE
  2. BUSULFAN [Concomitant]
     Dosage: 800 mg, UNK
  3. CYCLOPHOSPHAMIDE [Concomitant]
     Dosage: 6.2 g, UNK
  4. ANTITHYMOCYTE IMMUNOGLOBULIN (RABBIT) [Concomitant]
     Dosage: 325 mg, UNK
  5. MYCOPHENOLATE MOFETIL [Concomitant]
     Indication: PROPHYLAXIS AGAINST GRAFT VERSUS HOST DISEASE

REACTIONS (7)
  - Cystitis haemorrhagic [Recovered/Resolved]
  - Ureteric stenosis [Recovered/Resolved]
  - Hydronephrosis [Recovered/Resolved]
  - Polyomavirus test positive [Recovered/Resolved]
  - Renal impairment [Recovered/Resolved]
  - BK virus infection [Recovered/Resolved]
  - Hydroureter [Recovered/Resolved]
